FAERS Safety Report 6121188-0 (Version None)
Quarter: 2009Q1

REPORT INFORMATION
  Report Type: 
  Country: None (occurrence: None)
  Receive Date: 20090312
  Receipt Date: 20090303
  Transmission Date: 20090719
  Serious: Yes (Hospitalization, Other)
  Sender: FDA-Public Use
  Company Number: FABR-1000632

PATIENT
  Age: 20 Year
  Sex: Male
  Weight: 53 kg

DRUGS (5)
  1. FABRAZYME [Suspect]
     Indication: FABRY'S DISEASE
     Dosage: 1 MG/KG, Q2W, INTRAVENOUS
     Route: 042
     Dates: start: 20081201, end: 20090115
  2. RAMIPRIL [Concomitant]
  3. METAMIZOL (METAMIZOLE MAGNESIUM) [Concomitant]
  4. PREGABALIN (PREGABALIN) [Concomitant]
  5. HYDROMORPHONE HCL [Concomitant]

REACTIONS (7)
  - CONVULSION [None]
  - EYE SWELLING [None]
  - HYPERHIDROSIS [None]
  - INFUSION RELATED REACTION [None]
  - PAIN [None]
  - SWELLING FACE [None]
  - URTICARIA [None]
